FAERS Safety Report 7691453-4 (Version None)
Quarter: 2011Q3

REPORT INFORMATION
  Report Type: 
  Country: None (occurrence: None)
  Receive Date: 20110818
  Receipt Date: 20110813
  Transmission Date: 20111222
  Serious: Yes (Death, Other)
  Sender: FDA-Public Use
  Company Number: PHHY2011GB73516

PATIENT
  Age: 1 Year
  Sex: Female

DRUGS (1)
  1. VALSARTAN [Suspect]

REACTIONS (4)
  - DIARRHOEA [None]
  - KIDNEY MALFORMATION [None]
  - VOMITING [None]
  - RENAL IMPAIRMENT [None]
